FAERS Safety Report 5858215-1 (Version None)
Quarter: 2008Q3

REPORT INFORMATION
  Report Type: 
  Country: None (occurrence: None)
  Receive Date: 20080826
  Receipt Date: 20080821
  Transmission Date: 20090109
  Serious: Yes (Hospitalization)
  Sender: FDA-Public Use
  Company Number: A0732000A

PATIENT
  Age: 80 Year
  Sex: Male
  Weight: 75 kg

DRUGS (4)
  1. AVANDIA [Suspect]
     Dosage: 4MG PER DAY
     Route: 048
     Dates: start: 20030426, end: 20070101
  2. LANTUS [Concomitant]
     Dates: start: 20060401, end: 20060501
  3. AMARYL [Concomitant]
     Dates: start: 20060101
  4. GLUCOTROL [Concomitant]
     Dates: start: 20041209, end: 20060901

REACTIONS (5)
  - BLINDNESS [None]
  - CARDIOVASCULAR DISORDER [None]
  - LOSS OF CONSCIOUSNESS [None]
  - MYOCARDIAL INFARCTION [None]
  - SYNCOPE [None]
